FAERS Safety Report 25340690 (Version 2)
Quarter: 2025Q2

REPORT INFORMATION
  Report Type: Spontaneous
  Country: JP (occurrence: JP)
  Receive Date: 20250521
  Receipt Date: 20250529
  Transmission Date: 20250716
  Serious: Yes (Other)
  Sender: ABBVIE
  Company Number: JP-ABBVIE-6285383

PATIENT

DRUGS (1)
  1. HUMIRA [Suspect]
     Active Substance: ADALIMUMAB
     Indication: Pyoderma gangrenosum
     Dosage: FORM STRENGTH: 40 MG
     Route: 058
     Dates: end: 20250513

REACTIONS (2)
  - Pneumothorax [Not Recovered/Not Resolved]
  - Dysphagia [Unknown]

NARRATIVE: CASE EVENT DATE: 20250513
